FAERS Safety Report 4850758-2 (Version None)
Quarter: 2005Q4

REPORT INFORMATION
  Report Type: 
  Country: None (occurrence: None)
  Receive Date: 20051212
  Receipt Date: 20051207
  Transmission Date: 20060501
  Serious: Yes (Hospitalization)
  Sender: FDA-Public Use
  Company Number: FR-BRISTOL-MYERS SQUIBB COMPANY-13207709

PATIENT
  Age: 56 Year
  Sex: Female

DRUGS (8)
  1. MUCOMYST [Suspect]
     Indication: TRACHEOBRONCHITIS
     Dates: start: 20051031, end: 20051031
  2. CLAMOXYL [Suspect]
     Indication: TRACHEOBRONCHITIS
     Dates: start: 20051031, end: 20051105
  3. SURGAM [Suspect]
     Indication: TRACHEOBRONCHITIS
     Dates: start: 20051031, end: 20051105
  4. APROVEL [Concomitant]
  5. DIAMICRON [Concomitant]
  6. ELISOR [Concomitant]
  7. NIFEDIPINE [Concomitant]
  8. TENORMIN [Concomitant]

REACTIONS (2)
  - EOSINOPHILIA [None]
  - RASH MACULO-PAPULAR [None]
